FAERS Safety Report 25457624 (Version 3)
Quarter: 2025Q3

REPORT INFORMATION
  Report Type: Report from Study
  Country: CO (occurrence: CO)
  Receive Date: 20250619
  Receipt Date: 20250729
  Transmission Date: 20251020
  Serious: Yes (Hospitalization, Other)
  Sender: NOVARTIS
  Company Number: CO-002147023-NVSC2025CO089949

PATIENT
  Sex: Male
  Weight: 59.6 kg

DRUGS (5)
  1. TASIGNA [Suspect]
     Active Substance: NILOTINIB
     Indication: Chronic myeloid leukaemia
     Route: 065
     Dates: start: 202106
  2. TASIGNA [Suspect]
     Active Substance: NILOTINIB
     Indication: Philadelphia positive chronic myeloid leukaemia
     Route: 065
     Dates: start: 2023
  3. TASIGNA [Suspect]
     Active Substance: NILOTINIB
     Dosage: 400 MG, Q12H
     Route: 048
     Dates: start: 20250614
  4. OMEPRAZOLE [Concomitant]
     Active Substance: OMEPRAZOLE
     Indication: Product used for unknown indication
     Dosage: 2 DOSAGE FORM, Q8H (8 MG, KDE, TABLET)
     Route: 065
  5. MORPHINE [Concomitant]
     Active Substance: MORPHINE
     Indication: Product used for unknown indication
     Route: 065

REACTIONS (23)
  - Splenomegaly [Recovered/Resolved]
  - Weight decreased [Unknown]
  - Treatment failure [Recovered/Resolved]
  - Urethral discharge syndrome [Recovered/Resolved]
  - Polyuria [Unknown]
  - Dysuria [Recovered/Resolved]
  - Sexually transmitted disease [Recovered/Resolved]
  - Hypothyroidism [Recovered/Resolved]
  - Haemoglobin decreased [Recovered/Resolved]
  - Malaise [Recovered/Resolved]
  - Pallor [Recovered/Resolved]
  - Inflammation [Not Recovered/Not Resolved]
  - Infection [Recovered/Resolved]
  - Erythema [Not Recovered/Not Resolved]
  - Self-injurious ideation [Unknown]
  - Anxiety [Unknown]
  - Feeling abnormal [Unknown]
  - Panic reaction [Unknown]
  - Depressive symptom [Unknown]
  - Insomnia [Unknown]
  - Arthralgia [Not Recovered/Not Resolved]
  - Diarrhoea [Recovered/Resolved]
  - Product supply issue [Unknown]

NARRATIVE: CASE EVENT DATE: 20230101
